FAERS Safety Report 6897140-4 (Version None)
Quarter: 2010Q3

REPORT INFORMATION
  Report Type: 
  Country: None (occurrence: None)
  Receive Date: 20100802
  Receipt Date: 20070418
  Transmission Date: 20110219
  Serious: No
  Sender: FDA-Public Use
  Company Number: US-PFIZER INC-2007029300

PATIENT
  Sex: Male
  Weight: 102.1 kg

DRUGS (4)
  1. LYRICA [Suspect]
     Indication: PAIN IN EXTREMITY
     Dates: start: 20070401
  2. LYRICA [Suspect]
     Indication: ARTHRALGIA
  3. VERAPAMIL [Concomitant]
     Indication: HYPERTENSION
  4. IBUPROFEN [Concomitant]

REACTIONS (3)
  - JOINT SWELLING [None]
  - OEDEMA PERIPHERAL [None]
  - PAIN [None]
